FAERS Safety Report 16629537 (Version 1)
Quarter: 2019Q3

REPORT INFORMATION
  Report Type: Spontaneous
  Country: US (occurrence: US)
  Receive Date: 20190725
  Receipt Date: 20190725
  Transmission Date: 20191004
  Serious: Yes (Hospitalization, Other)
  Sender: FDA-Public Use
  Company Number: US-UCBSA-2019030548

PATIENT
  Age: 62 Year
  Sex: Female

DRUGS (1)
  1. KEPPRA [Suspect]
     Active Substance: LEVETIRACETAM
     Indication: EPILEPSY
     Dosage: UNK

REACTIONS (5)
  - Fall [Unknown]
  - Seizure [Unknown]
  - Brain injury [Unknown]
  - Mouth injury [Unknown]
  - Tooth fracture [Unknown]

NARRATIVE: CASE EVENT DATE: 2019
